FAERS Safety Report 4338184-6 (Version None)
Quarter: 2004Q2

REPORT INFORMATION
  Report Type: 
  Country: None (occurrence: None)
  Receive Date: 20040413
  Receipt Date: 20040413
  Transmission Date: 20050107
  Serious: Yes (Life-Threatening, Hospitalization)
  Sender: FDA-Public Use
  Company Number: None

PATIENT
  Age: 88 Year
  Sex: Male
  Weight: 81.6475 kg

DRUGS (1)
  1. DURAGESIC [Suspect]
     Indication: ARTHROPATHY
     Dosage: 75 MG 72 HOURS TRANSDERMAL
     Route: 062
     Dates: start: 20020117, end: 20040401

REACTIONS (3)
  - DEMENTIA [None]
  - NAUSEA [None]
  - PHARMACEUTICAL PRODUCT COMPLAINT [None]
